FAERS Safety Report 5194543-3 (Version None)
Quarter: 2006Q4

REPORT INFORMATION
  Report Type: 
  Country: None (occurrence: None)
  Receive Date: 20061222
  Receipt Date: 20061212
  Transmission Date: 20070319
  Serious: Yes (Hospitalization)
  Sender: FDA-Public Use
  Company Number: HQWYE990113DEC06

PATIENT
  Age: 64 Year
  Sex: Male

DRUGS (4)
  1. RAPAMUNE [Suspect]
     Indication: PROPHYLAXIS AGAINST TRANSPLANT REJECTION
     Route: 048
  2. ALLOPURINOL SODIUM [Concomitant]
  3. LAMIVUDINE [Concomitant]
  4. FLUVASTATIN [Concomitant]

REACTIONS (2)
  - RENAL FAILURE [None]
  - URINARY TRACT INFECTION [None]
